FAERS Safety Report 12283805 (Version 1)
Quarter: 2016Q2

REPORT INFORMATION
  Report Type: Spontaneous
  Country: US (occurrence: US)
  Receive Date: 20160419
  Receipt Date: 20160419
  Transmission Date: 20160815
  Serious: Yes (Other)
  Sender: FDA-Public Use
  Company Number: US-BANPHARM-20154272

PATIENT
  Age: 14 Year
  Sex: Male

DRUGS (1)
  1. ALEVE [Suspect]
     Active Substance: NAPROXEN SODIUM
     Indication: HEADACHE
     Dosage: 1 DF, ONCE,
     Route: 048
     Dates: start: 20150923, end: 20150923

REACTIONS (9)
  - Lip swelling [Unknown]
  - Asthenia [Unknown]
  - Cold sweat [Unknown]
  - Pain [Unknown]
  - Ocular hyperaemia [Unknown]
  - Dyspnoea [Recovered/Resolved]
  - Peripheral coldness [Recovered/Resolved]
  - Peripheral swelling [Unknown]
  - Rash [Unknown]

NARRATIVE: CASE EVENT DATE: 20150923
